FAERS Safety Report 18241969 (Version 3)
Quarter: 2021Q1

REPORT INFORMATION
  Report Type: Report from Study
  Country: US (occurrence: US)
  Receive Date: 20200908
  Receipt Date: 20210309
  Transmission Date: 20210419
  Serious: Yes (Hospitalization, Other)
  Sender: FDA-Public Use
  Company Number: US-ASTELLAS-2020US000043

PATIENT
  Age: 86 Year
  Sex: Male

DRUGS (6)
  1. ALTACE [Concomitant]
     Active Substance: RAMIPRIL
     Indication: PRODUCT USED FOR UNKNOWN INDICATION
     Dosage: UNK UNK, UNKNOWN FREQ.
     Route: 065
  2. ASPIRIN [ACETYLSALICYLIC ACID] [Concomitant]
     Active Substance: ASPIRIN
     Indication: PRODUCT USED FOR UNKNOWN INDICATION
     Dosage: UNK UNK, UNKNOWN FREQ.
     Route: 065
  3. LEVOTHYROXINE. [Concomitant]
     Active Substance: LEVOTHYROXINE
     Indication: PRODUCT USED FOR UNKNOWN INDICATION
     Dosage: UNK UNK, UNKNOWN FREQ.
     Route: 065
  4. ENZALUTAMIDE [Suspect]
     Active Substance: ENZALUTAMIDE
     Route: 048
     Dates: end: 202011
  5. SIMVASTATIN. [Concomitant]
     Active Substance: SIMVASTATIN
     Indication: PRODUCT USED FOR UNKNOWN INDICATION
     Dosage: UNK UNK, UNKNOWN FREQ.
     Route: 065
  6. ENZALUTAMIDE [Suspect]
     Active Substance: ENZALUTAMIDE
     Indication: PROSTATE CANCER
     Route: 048
     Dates: start: 20191008

REACTIONS (13)
  - Upper limb fracture [Recovered/Resolved]
  - Lung disorder [Recovered/Resolved]
  - Hallucination [Recovering/Resolving]
  - Hip fracture [Recovering/Resolving]
  - Fall [Recovered/Resolved]
  - Confusional state [Recovering/Resolving]
  - Fall [Recovered/Resolved]
  - Rib fracture [Recovered/Resolved]
  - Blood pressure fluctuation [Recovered/Resolved]
  - Hip fracture [Recovering/Resolving]
  - Fall [Recovered/Resolved]
  - Oxygen saturation decreased [Recovered/Resolved]
  - Dyspnoea [Recovering/Resolving]

NARRATIVE: CASE EVENT DATE: 201912
